FAERS Safety Report 9444718 (Version 2)
Quarter: 2013Q3

REPORT INFORMATION
  Report Type: Spontaneous
  Country: US (occurrence: None)
  Receive Date: 20130805
  Receipt Date: 20130809
  Transmission Date: 20140515
  Serious: Yes (Hospitalization)
  Sender: FDA-Public Use
  Company Number: UTC-035986

PATIENT
  Age: 59 Year
  Sex: Female
  Weight: 54.09 kg

DRUGS (3)
  1. TYVASCO [Suspect]
     Dosage: 18 TO 54 MICROGRAMS (4 IN 1 D), INHALATION
     Route: 055
     Dates: start: 20130701, end: 20130720
  2. SILDENAFIL [Concomitant]
  3. LETAIRIS (AMBRISENTAN) (TABLETS) [Concomitant]

REACTIONS (6)
  - Dyspnoea [None]
  - Fluid retention [None]
  - Lethargy [None]
  - Headache [None]
  - Malaise [None]
  - Oedema [None]
